FAERS Safety Report 6135524-2 (Version None)
Quarter: 2009Q1

REPORT INFORMATION
  Report Type: 
  Country: None (occurrence: None)
  Receive Date: 20090327
  Receipt Date: 20090320
  Transmission Date: 20090719
  Serious: Yes (Hospitalization)
  Sender: FDA-Public Use
  Company Number: B0566066A

PATIENT
  Sex: Female

DRUGS (3)
  1. CLAMOXYL [Suspect]
     Indication: TONSILLITIS
     Route: 048
     Dates: start: 20081022, end: 20081028
  2. IBUPROFENE [Suspect]
     Indication: TONSILLITIS
     Route: 048
     Dates: start: 20081022, end: 20081025
  3. LEVONORGESTREL AND ETHINYL ESTRADIOL [Concomitant]
     Indication: ORAL CONTRACEPTION
     Dosage: 1TAB PER DAY
     Route: 048

REACTIONS (6)
  - FACE OEDEMA [None]
  - LYMPHADENOPATHY [None]
  - NEUTROPHILIA [None]
  - RASH MACULO-PAPULAR [None]
  - RASH PUSTULAR [None]
  - TOXIC SKIN ERUPTION [None]
